FAERS Safety Report 7543068-6 (Version None)
Quarter: 2011Q2

REPORT INFORMATION
  Report Type: 
  Country: None (occurrence: None)
  Receive Date: 20110606
  Receipt Date: 20110524
  Transmission Date: 20111010
  Serious: Yes (Hospitalization, Other)
  Sender: FDA-Public Use
  Company Number: ACO_23367_2011

PATIENT
  Age: 41 Year
  Sex: Female
  Weight: 51.2 kg

DRUGS (4)
  1. REBIF [Concomitant]
  2. LEXAPRO [Concomitant]
  3. AMPYRA [Suspect]
     Indication: MULTIPLE SCLEROSIS
     Dosage: 10 MG, BID, ORAL
     Route: 048
  4. AMPYRA [Suspect]
     Indication: GAIT DISTURBANCE
     Dosage: 10 MG, BID, ORAL
     Route: 048

REACTIONS (8)
  - SPEECH DISORDER [None]
  - MENORRHAGIA [None]
  - CRYING [None]
  - ABNORMAL BEHAVIOUR [None]
  - FALL [None]
  - BIPOLAR I DISORDER [None]
  - HEADACHE [None]
  - HEAD INJURY [None]
